FAERS Safety Report 20134842 (Version 1)
Quarter: 2021Q4

REPORT INFORMATION
  Report Type: Spontaneous
  Country: CN (occurrence: None)
  Receive Date: 20211201
  Receipt Date: 20211201
  Transmission Date: 20220303
  Serious: Yes (Other)
  Sender: FDA-Public Use
  Company Number: CN-ROCHE-2963091

PATIENT
  Age: 60 Year
  Sex: Female

DRUGS (30)
  1. MABTHERA [Suspect]
     Active Substance: RITUXIMAB
     Indication: Follicular lymphoma
     Dosage: R-CVP
     Route: 065
     Dates: start: 20180831
  2. MABTHERA [Suspect]
     Active Substance: RITUXIMAB
     Dosage: R-CDOP
     Route: 065
     Dates: start: 20181107
  3. MABTHERA [Suspect]
     Active Substance: RITUXIMAB
     Dosage: R-CDOP
     Route: 065
     Dates: start: 20181128
  4. MABTHERA [Suspect]
     Active Substance: RITUXIMAB
     Dosage: R-CDOPE
     Route: 065
     Dates: start: 20190124
  5. MABTHERA [Suspect]
     Active Substance: RITUXIMAB
     Dosage: R
     Route: 065
     Dates: start: 20190725
  6. OBINUTUZUMAB [Concomitant]
     Active Substance: OBINUTUZUMAB
     Indication: Follicular lymphoma
     Route: 042
     Dates: start: 20211113
  7. CYCLOPHOSPHAMIDE [Concomitant]
     Active Substance: CYCLOPHOSPHAMIDE
     Indication: Follicular lymphoma
     Dosage: R-CVP
     Dates: start: 20180831
  8. CYCLOPHOSPHAMIDE [Concomitant]
     Active Substance: CYCLOPHOSPHAMIDE
     Dosage: R-CDOP
     Dates: start: 20181107
  9. CYCLOPHOSPHAMIDE [Concomitant]
     Active Substance: CYCLOPHOSPHAMIDE
     Dosage: R-CDOP
     Dates: start: 20181128
  10. CYCLOPHOSPHAMIDE [Concomitant]
     Active Substance: CYCLOPHOSPHAMIDE
     Dosage: R-CDOPE
     Dates: start: 20190124
  11. VINDESINE [Concomitant]
     Active Substance: VINDESINE
     Indication: Follicular lymphoma
     Dosage: R-CVP
     Dates: start: 20180831
  12. VINDESINE [Concomitant]
     Active Substance: VINDESINE
     Dosage: R-CDOP
     Dates: start: 20181107
  13. VINDESINE [Concomitant]
     Active Substance: VINDESINE
     Dosage: R-CDOP
     Dates: start: 20181128
  14. VINDESINE [Concomitant]
     Active Substance: VINDESINE
     Dosage: R-CDOPE
     Dates: start: 20190124
  15. PREDNISOLONE [Concomitant]
     Active Substance: PREDNISOLONE
     Indication: Follicular lymphoma
     Dosage: R-CVP
     Route: 048
     Dates: start: 20180831
  16. PREDNISOLONE [Concomitant]
     Active Substance: PREDNISOLONE
     Dosage: R-CDOP
     Route: 048
     Dates: start: 20181107
  17. PREDNISOLONE [Concomitant]
     Active Substance: PREDNISOLONE
     Dosage: R-CDOP
     Route: 048
     Dates: start: 20181128
  18. DEXAMETHASONE [Concomitant]
     Active Substance: DEXAMETHASONE
     Indication: Follicular lymphoma
     Dosage: R-CDOP
     Dates: start: 20181128
  19. DEXAMETHASONE [Concomitant]
     Active Substance: DEXAMETHASONE
     Dosage: R-CDOPE
     Dates: start: 20190124
  20. DEXAMETHASONE [Concomitant]
     Active Substance: DEXAMETHASONE
     Dates: start: 20201207
  21. DEXAMETHASONE [Concomitant]
     Active Substance: DEXAMETHASONE
     Route: 041
     Dates: start: 20201113
  22. ETOPOSIDE [Concomitant]
     Active Substance: ETOPOSIDE
     Indication: Follicular lymphoma
     Dosage: R-CDOPE
     Dates: start: 20190124
  23. LENALIDOMIDE [Concomitant]
     Active Substance: LENALIDOMIDE
     Indication: Follicular lymphoma
     Route: 048
     Dates: start: 201904
  24. AZACITIDINE [Concomitant]
     Active Substance: AZACITIDINE
     Indication: Follicular lymphoma
     Dates: start: 20201113
  25. VENETOCLAX [Concomitant]
     Active Substance: VENETOCLAX
     Indication: Follicular lymphoma
     Dosage: 100 MG D1, 200 MG D2, 400 MG D3-14
     Dates: start: 20201113
  26. PROMETHAZINE HYDROCHLORIDE [Concomitant]
     Active Substance: PROMETHAZINE HYDROCHLORIDE
     Indication: Follicular lymphoma
     Route: 030
     Dates: start: 20201113
  27. ACETAMINOPHEN [Concomitant]
     Active Substance: ACETAMINOPHEN
     Indication: Follicular lymphoma
     Route: 048
     Dates: start: 20201113
  28. TUCIDINOSTAT [Concomitant]
     Active Substance: TUCIDINOSTAT
     Indication: Follicular lymphoma
     Dates: start: 20201207
  29. THALIDOMIDE [Concomitant]
     Active Substance: THALIDOMIDE
     Indication: Follicular lymphoma
     Dates: start: 20201207
  30. BENDAMUSTINE [Concomitant]
     Active Substance: BENDAMUSTINE
     Indication: Follicular lymphoma
     Dates: start: 20200625

REACTIONS (3)
  - Lower gastrointestinal haemorrhage [Unknown]
  - Drug ineffective [Unknown]
  - Infection [Unknown]
